FAERS Safety Report 6923992-5 (Version None)
Quarter: 2010Q3

REPORT INFORMATION
  Report Type: 
  Country: None (occurrence: None)
  Receive Date: 20100813
  Receipt Date: 20100805
  Transmission Date: 20110219
  Serious: Yes (Hospitalization)
  Sender: FDA-Public Use
  Company Number: US-MPIJNJ-2010-04201

PATIENT
  Age: 55 Year
  Sex: Female
  Weight: 89.4 kg

DRUGS (1)
  1. VELCADE [Suspect]
     Indication: MULTIPLE MYELOMA
     Dosage: 2.5 MG, 1/WEEK
     Route: 042
     Dates: start: 20100126, end: 20100420

REACTIONS (2)
  - PAIN [None]
  - PANCYTOPENIA [None]
